FAERS Safety Report 9262568 (Version 1)
Quarter: 2013Q2

REPORT INFORMATION
  Report Type: Spontaneous
  Country: GB (occurrence: None)
  Receive Date: 20130425
  Receipt Date: 20130425
  Transmission Date: 20140414
  Serious: Yes (Other)
  Sender: FDA-Public Use
  Company Number: HRA-CDB20130043

PATIENT
  Age: 16 Year
  Sex: Female
  Weight: 51.7 kg

DRUGS (1)
  1. ELLAONE 30 MG TABLET (ELLAONE) (ULIPRISTAL ACETATE) [Suspect]
     Indication: POST COITAL CONTRACEPTION
     Dosage: 1 DAY

REACTIONS (4)
  - Blighted ovum [None]
  - Abortion induced [None]
  - Unintended pregnancy [None]
  - Exposure during pregnancy [None]
